FAERS Safety Report 16275526 (Version 1)
Quarter: 2019Q2

REPORT INFORMATION
  Report Type: Spontaneous
  Country: RO (occurrence: RO)
  Receive Date: 20190504
  Receipt Date: 20190504
  Transmission Date: 20190711
  Serious: Yes (Other)
  Sender: FDA-Public Use
  Company Number: PHHY2019RO089054

PATIENT
  Age: 61 Year
  Sex: Female

DRUGS (2)
  1. IBRANCE [Suspect]
     Active Substance: PALBOCICLIB
     Indication: BREAST CANCER METASTATIC
     Dosage: 125 MG, 1 CYCLICAL (21 DAYS WITH 7 DAYS PAUSE, ADMINISTERED WITH FOOD)
     Route: 065
     Dates: start: 201809
  2. LETROZOLE. [Suspect]
     Active Substance: LETROZOLE
     Indication: BREAST CANCER METASTATIC
     Dosage: 2.5 MG, QD
     Route: 065
     Dates: start: 201809

REACTIONS (3)
  - Neutropenia [Recovered/Resolved]
  - Leukopenia [Recovered/Resolved]
  - Anaemia [Unknown]

NARRATIVE: CASE EVENT DATE: 20180925
